FAERS Safety Report 9717991 (Version 1)
Quarter: 2013Q4

REPORT INFORMATION
  Report Type: Spontaneous
  Country: US (occurrence: US)
  Receive Date: 20131125
  Receipt Date: 20131125
  Transmission Date: 20140711
  Serious: No
  Sender: FDA-Public Use
  Company Number: US-VIVUS-2013V1000411

PATIENT
  Age: 67 Year
  Sex: Female
  Weight: 102.15 kg

DRUGS (7)
  1. QSYMIA 3.75MG/23MG [Suspect]
     Indication: WEIGHT DECREASED
     Route: 048
     Dates: start: 20130428, end: 20130511
  2. QSYMIA 7.5MG/46MG [Suspect]
     Indication: WEIGHT DECREASED
     Route: 048
     Dates: start: 20130512
  3. LOSARTAN KCL [Concomitant]
     Indication: HYPERTENSION
     Route: 048
     Dates: start: 2008
  4. PROTONIX [Concomitant]
     Indication: GASTROOESOPHAGEAL REFLUX DISEASE
     Route: 048
     Dates: start: 2013
  5. ATIVAN [Concomitant]
     Indication: SLEEP DISORDER
     Route: 048
  6. ATIVAN [Concomitant]
     Indication: ANXIETY
  7. DOXYCYCLINE [Concomitant]
     Indication: SKIN LESION
     Route: 048

REACTIONS (1)
  - Acne [Not Recovered/Not Resolved]
